FAERS Safety Report 6795197-2 (Version None)
Quarter: 2010Q2

REPORT INFORMATION
  Report Type: 
  Country: None (occurrence: None)
  Receive Date: 20100624
  Receipt Date: 20100624
  Transmission Date: 20101027
  Serious: Yes (Other)
  Sender: FDA-Public Use
  Company Number: None

PATIENT
  Age: 61 Year
  Sex: Female
  Weight: 63.6 kg

DRUGS (4)
  1. ORACEA [Suspect]
     Indication: ROSACEA
     Dosage: 40 MG DAILY PO
     Route: 048
     Dates: start: 20100208
  2. SYNTHROID [Concomitant]
  3. NEUPOGEN [Concomitant]
  4. PRAVASTATIN [Concomitant]

REACTIONS (1)
  - GENITAL ULCERATION [None]
